FAERS Safety Report 14038712 (Version 1)
Quarter: 2017Q4

REPORT INFORMATION
  Report Type: Spontaneous
  Country: DE (occurrence: DE)
  Receive Date: 20171004
  Receipt Date: 20171004
  Transmission Date: 20180321
  Serious: Yes (Other)
  Sender: FDA-Public Use
  Company Number: DE-SA-2017SA147639

PATIENT
  Age: 45 Year
  Sex: Male
  Weight: 138 kg

DRUGS (20)
  1. PRALUENT [Suspect]
     Active Substance: ALIROCUMAB
     Indication: HYPERCHOLESTEROLAEMIA
     Dosage: DOSE: 75-150 MG CONSECUTIVELY
     Route: 058
     Dates: start: 20170428, end: 201705
  2. RAMIPRIL COMP [Concomitant]
     Active Substance: HYDROCHLOROTHIAZIDE\RAMIPRIL
     Route: 065
  3. ALIROCUMAB PREFILLED PEN [Suspect]
     Active Substance: ALIROCUMAB
     Indication: HYPERCHOLESTEROLAEMIA
     Dates: start: 201707
  4. BAYMYCARD [Concomitant]
     Active Substance: NISOLDIPINE
     Route: 065
  5. EZETROL [Concomitant]
     Active Substance: EZETIMIBE
     Route: 065
  6. PRALUENT [Suspect]
     Active Substance: ALIROCUMAB
     Indication: HYPERCHOLESTEROLAEMIA
     Route: 058
     Dates: start: 201707
  7. ALIROCUMAB PREFILLED PEN [Suspect]
     Active Substance: ALIROCUMAB
     Indication: HYPERCHOLESTEROLAEMIA
     Dates: start: 20170428, end: 201705
  8. ALIROCUMAB PREFILLED PEN [Suspect]
     Active Substance: ALIROCUMAB
     Indication: HYPERCHOLESTEROLAEMIA
     Dates: start: 20170601, end: 201707
  9. ALIROCUMAB PREFILLED PEN [Suspect]
     Active Substance: ALIROCUMAB
     Indication: HYPERCHOLESTEROLAEMIA
     Dates: start: 20170428, end: 201705
  10. FUROSEMIDE ^HEUMANN^ [Concomitant]
     Dosage: 1 IN MORNING AND HALF IN NOON
     Route: 065
  11. ASS PROTECT [Concomitant]
     Route: 065
  12. ATORVASTATIN [Concomitant]
     Active Substance: ATORVASTATIN
     Route: 065
  13. EZETIMIBE. [Concomitant]
     Active Substance: EZETIMIBE
     Route: 065
  14. PROCORALAN [Concomitant]
     Active Substance: IVABRADINE
     Route: 065
  15. MIFLONIDE [Concomitant]
     Active Substance: BUDESONIDE
     Route: 065
  16. OXYGEN. [Concomitant]
     Active Substance: OXYGEN
  17. PRALUENT [Suspect]
     Active Substance: ALIROCUMAB
     Indication: HYPERCHOLESTEROLAEMIA
     Dosage: STRENGTH 150 MG
     Route: 058
     Dates: start: 20170601, end: 201707
  18. RAMIPRIL. [Concomitant]
     Active Substance: RAMIPRIL
     Route: 048
  19. ULTIBRO [Concomitant]
     Active Substance: GLYCOPYRRONIUM\INDACATEROL
     Route: 065
  20. PRALUENT [Suspect]
     Active Substance: ALIROCUMAB
     Indication: HYPERCHOLESTEROLAEMIA
     Dosage: DOSE: 75-150 MG CONSECUTIVELY
     Route: 058
     Dates: start: 20170428, end: 201705

REACTIONS (3)
  - Fatigue [Unknown]
  - Lethargy [Unknown]
  - Depressed mood [Recovered/Resolved]

NARRATIVE: CASE EVENT DATE: 2017
